FAERS Safety Report 5493308-2 (Version None)
Quarter: 2007Q4

REPORT INFORMATION
  Report Type: 
  Country: None (occurrence: None)
  Receive Date: 20071023
  Receipt Date: 20061017
  Transmission Date: 20080405
  Serious: No
  Sender: FDA-Public Use
  Company Number: US-BRISTOL-MYERS SQUIBB COMPANY-13540729

PATIENT
  Sex: Female

DRUGS (1)
  1. KENALOG-40 [Suspect]
     Indication: FOLLICULITIS
     Dosage: INJECTIONS BEGAN FEB-2006 MONTHLY, THEN EVERY 2 WEEKS THEN WEEKLY.
     Route: 026
     Dates: start: 20060201

REACTIONS (3)
  - AMENORRHOEA [None]
  - HAIR GROWTH ABNORMAL [None]
  - HEADACHE [None]
